FAERS Safety Report 14788937 (Version 1)
Quarter: 2018Q2

REPORT INFORMATION
  Report Type: Spontaneous
  Country: FR (occurrence: FR)
  Receive Date: 20180423
  Receipt Date: 20180423
  Transmission Date: 20180711
  Serious: Yes (Hospitalization)
  Sender: FDA-Public Use
  Company Number: FR-MERCK KGAA-2046259

PATIENT
  Age: 65 Year
  Sex: Female

DRUGS (1)
  1. NOVOTHYROX [Suspect]
     Active Substance: LEVOTHYROXINE SODIUM
     Indication: PRODUCT USED FOR UNKNOWN INDICATION

REACTIONS (20)
  - Eye swelling [None]
  - Mood swings [None]
  - Swelling face [None]
  - Loss of personal independence in daily activities [None]
  - Gait disturbance [None]
  - C-reactive protein increased [Not Recovered/Not Resolved]
  - Goitre [None]
  - Saliva altered [None]
  - Anxiety [None]
  - Stress [None]
  - Social avoidant behaviour [None]
  - Lymphocyte count decreased [Not Recovered/Not Resolved]
  - Neutrophil count increased [None]
  - Monocyte count increased [None]
  - Palpitations [None]
  - Mobility decreased [None]
  - Fatigue [None]
  - Initial insomnia [None]
  - Psychiatric symptom [None]
  - General physical health deterioration [None]

NARRATIVE: CASE EVENT DATE: 20170317
